FAERS Safety Report 4394215-9 (Version None)
Quarter: 2004Q3

REPORT INFORMATION
  Report Type: 
  Country: None (occurrence: None)
  Receive Date: 20040706
  Receipt Date: 20040628
  Transmission Date: 20050211
  Serious: Yes (Hospitalization, Disabling)
  Sender: FDA-Public Use
  Company Number: 2004043175

PATIENT
  Age: 35 Year
  Sex: Male
  Weight: 108.8633 kg

DRUGS (1)
  1. SUDAFED 12 HOUR [Suspect]
     Indication: HEADACHE
     Dosage: 1 TABLET, TWICE, ORAL
     Route: 048
     Dates: start: 20031107, end: 20031108

REACTIONS (9)
  - BLOOD PRESSURE INCREASED [None]
  - CEREBROVASCULAR ACCIDENT [None]
  - CONVULSION [None]
  - JOINT DISLOCATION [None]
  - MYOCARDIAL INFARCTION [None]
  - PERIPHERAL NERVE INJURY [None]
  - THROMBOSIS [None]
  - TRANSIENT ISCHAEMIC ATTACK [None]
  - UPPER LIMB FRACTURE [None]
